FAERS Safety Report 22631535 (Version 9)
Quarter: 2024Q3

REPORT INFORMATION
  Report Type: Report from Study
  Country: US (occurrence: US)
  Receive Date: 20230623
  Receipt Date: 20240924
  Transmission Date: 20241016
  Serious: Yes (Other)
  Sender: NOVARTIS
  Company Number: US-002147023-NVSC2023US137803

PATIENT
  Age: 66 Year
  Sex: Female

DRUGS (1)
  1. KESIMPTA [Suspect]
     Active Substance: OFATUMUMAB
     Indication: Relapsing multiple sclerosis
     Dosage: 20 MG, QMO
     Route: 058
     Dates: start: 20230505

REACTIONS (7)
  - Colitis microscopic [Unknown]
  - Multiple sclerosis pseudo relapse [Unknown]
  - Dizziness [Unknown]
  - Sinusitis [Unknown]
  - Dyspnoea [Unknown]
  - Cough [Unknown]
  - Migraine [Unknown]

NARRATIVE: CASE EVENT DATE: 20230614
